FAERS Safety Report 6804996-X (Version None)
Quarter: 2010Q2

REPORT INFORMATION
  Report Type: 
  Country: None (occurrence: None)
  Receive Date: 20100628
  Receipt Date: 20070726
  Transmission Date: 20101027
  Serious: No
  Sender: FDA-Public Use
  Company Number: US-PFIZER INC-2007062216

PATIENT
  Sex: Female

DRUGS (9)
  1. XALATAN [Suspect]
     Indication: GLAUCOMA
     Route: 031
     Dates: start: 20070601
  2. OMACOR [Concomitant]
  3. ALREX [Concomitant]
  4. ALPRAZOLAM [Concomitant]
  5. OPHTHALMOLOGICALS [Concomitant]
  6. SYNTHROID [Concomitant]
  7. MULTI-VITAMINS [Concomitant]
  8. VITAMIN E [Concomitant]
  9. VITAMIN C [Concomitant]

REACTIONS (3)
  - PHOTOSENSITIVITY REACTION [None]
  - PRURITUS [None]
  - SKIN DISCOLOURATION [None]
